FAERS Safety Report 8777253 (Version 3)
Quarter: 2012Q4

REPORT INFORMATION
  Report Type: 
  Country: US (occurrence: US)
  Receive Date: 20120910
  Receipt Date: 20120928
  Transmission Date: 20130627
  Serious: Yes (Other)
  Sender: FDA-Public Use
  Company Number: US-ASTRAZENECA-2012SE69158

PATIENT
  Age: 61 Year
  Sex: Female

DRUGS (5)
  1. NEXIUM [Suspect]
     Route: 048
  2. PRILOSEC [Suspect]
     Route: 048
  3. TUMS [Concomitant]
  4. TAGAMET [Concomitant]
  5. PROTONIX [Concomitant]

REACTIONS (13)
  - Ulcer haemorrhage [Unknown]
  - Gastrooesophageal reflux disease [Unknown]
  - Vomiting [Unknown]
  - Barrett^s oesophagus [Unknown]
  - Diabetes mellitus [Unknown]
  - Crohn^s disease [Unknown]
  - Throat irritation [Unknown]
  - Diarrhoea [Unknown]
  - Malaise [Unknown]
  - Stomatitis [Unknown]
  - Off label use [Unknown]
  - Drug dose omission [Unknown]
  - Drug ineffective [Unknown]
